FAERS Safety Report 6620054-1 (Version None)
Quarter: 2010Q1

REPORT INFORMATION
  Report Type: 
  Country: None (occurrence: None)
  Receive Date: 20100309
  Receipt Date: 20100301
  Transmission Date: 20100710
  Serious: Yes (Hospitalization, Other)
  Sender: FDA-Public Use
  Company Number: US-ROCHE-647164

PATIENT
  Sex: Male
  Weight: 142.9 kg

DRUGS (6)
  1. PEG-INTERFERON A-2A (RO 25-8310) [Suspect]
     Indication: HEPATITIS C
     Dosage: WEEK 44 OF TREATMENT
     Route: 065
     Dates: start: 20090504
  2. RIBAVIRIN [Suspect]
     Indication: HEPATITIS C
     Dosage: THERAPY INTERRUPTED FOR 4 DAYS
     Route: 065
     Dates: start: 20090504
  3. RIBAVIRIN [Suspect]
     Dosage: WEEK 44 OF TREATMENT (DIVIDED DOSES)
     Route: 065
  4. WELLBUTRIN [Concomitant]
     Indication: INSOMNIA
  5. BUSPIRONE HCL [Concomitant]
     Indication: INSOMNIA
     Dosage: DRUG NAME: BUSPARIN
  6. LITHIUM [Concomitant]
     Indication: INSOMNIA

REACTIONS (11)
  - ANAEMIA [None]
  - DELIRIUM [None]
  - DEPRESSION [None]
  - DYSPHONIA [None]
  - HAEMOGLOBIN DECREASED [None]
  - MALAISE [None]
  - OROPHARYNGEAL PAIN [None]
  - PYREXIA [None]
  - RASH GENERALISED [None]
  - VOMITING [None]
  - WEIGHT DECREASED [None]
